FAERS Safety Report 4692067-0 (Version None)
Quarter: 2005Q2

REPORT INFORMATION
  Report Type: 
  Country: None (occurrence: None)
  Receive Date: 20050616
  Receipt Date: 20050616
  Transmission Date: 20051028
  Serious: Yes (Other)
  Sender: FDA-Public Use
  Company Number: None

PATIENT
  Sex: Male
  Weight: 76.4 kg

DRUGS (2)
  1. IRINOTECAN [Suspect]
     Indication: SMALL CELL LUNG CANCER STAGE UNSPECIFIED
     Dosage: 60 MG/M2 IV OVER 90 MIN ON DAYS 1, 8 + 15 Q 4 WKS.
     Route: 042
     Dates: start: 20050602
  2. CISPLATIN [Suspect]
     Dosage: 60 MG/M2 IV OVER 30-60 MIN ON DAY 1 Q 4 WKS.
     Route: 042

REACTIONS (10)
  - ANOREXIA [None]
  - BONE PAIN [None]
  - CONSTIPATION [None]
  - DEHYDRATION [None]
  - DIARRHOEA [None]
  - FLAT AFFECT [None]
  - INTERNATIONAL NORMALISED RATIO INCREASED [None]
  - MALAISE [None]
  - NAUSEA [None]
  - ORAL INTAKE REDUCED [None]
